FAERS Safety Report 19874076 (Version 1)
Quarter: 2021Q3

REPORT INFORMATION
  Report Type: Spontaneous
  Country: US (occurrence: US)
  Receive Date: 20210922
  Receipt Date: 20210922
  Transmission Date: 20211014
  Serious: No
  Sender: FDA-Public Use
  Company Number: US-SA-2021SA310039

PATIENT
  Sex: Male

DRUGS (17)
  1. VITAMIN C [Concomitant]
     Active Substance: ASCORBIC ACID
  2. BENFOTIAMINE [Concomitant]
     Active Substance: BENFOTIAMINE
  3. ZINC. [Concomitant]
     Active Substance: ZINC
  4. DUPIXENT [Suspect]
     Active Substance: DUPILUMAB
     Indication: ASTHMA
     Dosage: 300 MG,QOW
     Route: 058
  5. OMEPRAZOLE. [Concomitant]
     Active Substance: OMEPRAZOLE
  6. HYDROCHLOROTHIAZIDE. [Concomitant]
     Active Substance: HYDROCHLOROTHIAZIDE
  7. MONTELUKAST SODIUM. [Concomitant]
     Active Substance: MONTELUKAST SODIUM
     Indication: ASTHMA
  8. PREDNISONE. [Concomitant]
     Active Substance: PREDNISONE
     Indication: ASTHMA
  9. LEVOFLOXACIN. [Concomitant]
     Active Substance: LEVOFLOXACIN
  10. ELIQUIS [Concomitant]
     Active Substance: APIXABAN
  11. PEPCID COMPLETE [Concomitant]
     Active Substance: CALCIUM CARBONATE\FAMOTIDINE\MAGNESIUM HYDROXIDE
  12. METOPROLOL TARTRATE. [Concomitant]
     Active Substance: METOPROLOL TARTRATE
  13. FLONAZE [Concomitant]
     Active Substance: FLUTICASONE PROPIONATE
  14. AMOXICILLIN;CLAVULANIC ACID [Concomitant]
     Active Substance: AMOXICILLIN\CLAVULANIC ACID
  15. TRELEGY ELLIPTA [Concomitant]
     Active Substance: FLUTICASONE FUROATE\UMECLIDINIUM BROMIDE\VILANTEROL TRIFENATATE
  16. PROPAFENONE. [Concomitant]
     Active Substance: PROPAFENONE
  17. FISH OIL [Concomitant]
     Active Substance: FISH OIL

REACTIONS (7)
  - Secretion discharge [Unknown]
  - Peripheral coldness [Unknown]
  - Paraesthesia [Unknown]
  - Pyrexia [Unknown]
  - Hypoaesthesia [Unknown]
  - Infection [Unknown]
  - Cough [Unknown]
